FAERS Safety Report 16298859 (Version 1)
Quarter: 2019Q2

REPORT INFORMATION
  Report Type: Spontaneous
  Country: CA (occurrence: CA)
  Receive Date: 20190510
  Receipt Date: 20190510
  Transmission Date: 20190711
  Serious: Yes (Other)
  Sender: FDA-Public Use
  Company Number: CA-TEVA-2019-CA-1047004

PATIENT
  Sex: Male

DRUGS (2)
  1. SALOFALK [MESALAZINE] [Suspect]
     Active Substance: MESALAMINE
     Route: 065
  2. PREDNISONE. [Suspect]
     Active Substance: PREDNISONE
     Dosage: 40 MILLIGRAM DAILY;
     Route: 065

REACTIONS (6)
  - Frequent bowel movements [Unknown]
  - Haematochezia [Unknown]
  - Abdominal pain [Unknown]
  - Anal incontinence [Unknown]
  - Rectal haemorrhage [Unknown]
  - Loss of personal independence in daily activities [Unknown]
